FAERS Safety Report 11457635 (Version 1)
Quarter: 2015Q3

REPORT INFORMATION
  Report Type: Spontaneous
  Country: CH (occurrence: CH)
  Receive Date: 20150904
  Receipt Date: 20150904
  Transmission Date: 20151125
  Serious: Yes (Life-Threatening, Hospitalization)
  Sender: FDA-Public Use
  Company Number: CH-ALVOGEN-2015AL003494

PATIENT
  Age: 22 Year
  Sex: Female

DRUGS (2)
  1. ATENOLOL. [Suspect]
     Active Substance: ATENOLOL
     Indication: SUICIDE ATTEMPT
     Route: 048
  2. INSULIN ASPART [Suspect]
     Active Substance: INSULIN ASPART
     Indication: SUICIDE ATTEMPT

REACTIONS (5)
  - Suicide attempt [Unknown]
  - Depression [Unknown]
  - Hypoglycaemic coma [Recovered/Resolved]
  - Hypokalaemia [Unknown]
  - Overdose [Unknown]
